FAERS Safety Report 8375630-5 (Version None)
Quarter: 2012Q2

REPORT INFORMATION
  Report Type: 
  Country: None (occurrence: None)
  Receive Date: 20120522
  Receipt Date: 20120518
  Transmission Date: 20120825
  Serious: Yes (Hospitalization, Other)
  Sender: FDA-Public Use
  Company Number: JP-BAYER-2011-026375

PATIENT
  Age: 63 Year
  Sex: Female
  Weight: 48.073 kg

DRUGS (10)
  1. FAMOTIDINE [Concomitant]
     Indication: GASTRITIS
     Dosage: 20 MG, QD
     Dates: start: 20101229
  2. NEXAVAR [Suspect]
     Dosage: 400 MG, QD
     Route: 048
     Dates: start: 20110422
  3. AMLODIPINE [Concomitant]
     Dosage: DAILY DOSE 5 MG
     Route: 048
  4. NEXAVAR [Suspect]
     Indication: METASTASES TO LUNG
     Dosage: DAILY DOSE 600 MG
     Route: 048
     Dates: start: 20110305, end: 20110324
  5. NEXAVAR [Suspect]
     Dosage: 200 MG, TID
     Route: 048
     Dates: start: 20110317
  6. NEXAVAR [Suspect]
     Dosage: DAILY DOSE 200-400 MG
     Route: 048
     Dates: start: 20110801
  7. MIRIPLATIN [Concomitant]
     Indication: THERAPEUTIC EMBOLISATION
     Dosage: UNK
     Route: 025
     Dates: start: 20101222, end: 20101222
  8. NEXAVAR [Suspect]
     Indication: HEPATIC NEOPLASM MALIGNANT
     Dosage: 200 MG, TID
     Route: 048
     Dates: start: 20110107, end: 20110128
  9. EPIRUBICIN HYDROCHLORIDE [Concomitant]
     Indication: THERAPEUTIC EMBOLISATION
     Dosage: DAILY DOSE 60 MG
     Route: 025
     Dates: start: 20101222, end: 20101222
  10. UREPEARL [Concomitant]
     Indication: PROPHYLAXIS
     Dosage: UNK
     Route: 061
     Dates: start: 20110107

REACTIONS (14)
  - MALAISE [None]
  - PLATELET COUNT DECREASED [None]
  - CHEST PAIN [None]
  - C-REACTIVE PROTEIN INCREASED [None]
  - BLOOD CREATINE PHOSPHOKINASE INCREASED [None]
  - SKIN NECROSIS [None]
  - HEPATECTOMY [None]
  - ANGINA UNSTABLE [None]
  - DECREASED APPETITE [None]
  - DIARRHOEA [None]
  - WOUND INFECTION [None]
  - IMPAIRED HEALING [None]
  - PALMAR-PLANTAR ERYTHRODYSAESTHESIA SYNDROME [None]
  - BLOOD CREATINE PHOSPHOKINASE MB INCREASED [None]
